FAERS Safety Report 4560753-9 (Version None)
Quarter: 2005Q1

REPORT INFORMATION
  Report Type: 
  Country: None (occurrence: None)
  Receive Date: 20050124
  Receipt Date: 20050120
  Transmission Date: 20050727
  Serious: Yes (Hospitalization, Other)
  Sender: FDA-Public Use
  Company Number: HQWYE464310JAN05

PATIENT
  Age: 2 Year
  Sex: Male

DRUGS (4)
  1. CHILDREN'S ADVIL [Suspect]
     Indication: NASOPHARYNGITIS
     Dosage: 4.87 MG 4 TIMES DAILY ORAL
     Route: 048
     Dates: start: 20041211, end: 20041214
  2. CHILDREN'S ADVIL [Suspect]
     Indication: PYREXIA
     Dosage: 4.87 MG 4 TIMES DAILY ORAL
     Route: 048
     Dates: start: 20041211, end: 20041214
  3. ACETAMINOPHEN [Suspect]
     Indication: NASOPHARYNGITIS
     Dosage: 150 MG 4 TIMES DAILY
     Dates: start: 20041211, end: 20041214
  4. ACETAMINOPHEN [Suspect]
     Indication: PYREXIA
     Dosage: 150 MG 4 TIMES DAILY
     Dates: start: 20041211, end: 20041214

REACTIONS (9)
  - CONDITION AGGRAVATED [None]
  - ERYTHEMA [None]
  - EYELID OEDEMA [None]
  - INFECTION [None]
  - LEUKOCYTOSIS [None]
  - NASOPHARYNGITIS [None]
  - NEUTROPHIL COUNT INCREASED [None]
  - SINUSITIS [None]
  - SKIN DISCOLOURATION [None]
